FAERS Safety Report 25077802 (Version 1)
Quarter: 2025Q1

REPORT INFORMATION
  Report Type: Report from Study
  Country: US (occurrence: US)
  Receive Date: 20250314
  Receipt Date: 20250314
  Transmission Date: 20250409
  Serious: Yes (Other)
  Sender: ABBVIE
  Company Number: US-ABBVIE-6119244

PATIENT
  Age: 67 Year
  Sex: Female

DRUGS (1)
  1. RINVOQ [Suspect]
     Active Substance: UPADACITINIB
     Indication: Crohn^s disease
     Route: 048
     Dates: start: 20240423

REACTIONS (4)
  - Shoulder fracture [Unknown]
  - Arthralgia [Recovering/Resolving]
  - Nerve compression [Unknown]
  - Fall [Unknown]

NARRATIVE: CASE EVENT DATE: 20240801
